FAERS Safety Report 17808316 (Version 3)
Quarter: 2020Q3

REPORT INFORMATION
  Report Type: Spontaneous
  Country: US (occurrence: US)
  Receive Date: 20200520
  Receipt Date: 20200811
  Transmission Date: 20201102
  Serious: Yes (Death, Hospitalization, Disabling, Other)
  Sender: FDA-Public Use
  Company Number: US-PURDUE-USA-2020-0153252

PATIENT
  Age: 42 Year
  Sex: Female

DRUGS (4)
  1. HYDROCODONE BITARTRATE (SIMILAR TO NDA 206627) [Suspect]
     Active Substance: HYDROCODONE BITARTRATE
     Indication: PAIN
     Dosage: (5?10 MG) 1 TABLET, Q4? 6H
     Route: 048
  2. PERCOCET                           /00446701/ [Suspect]
     Active Substance: ACETAMINOPHEN\OXYCODONE HYDROCHLORIDE\OXYCODONE TEREPHTHALATE
     Indication: PAIN
     Dosage: (5?10 MG) 1 TABLET, Q4? 6H
     Route: 048
  3. OXYCONTIN [Suspect]
     Active Substance: OXYCODONE HYDROCHLORIDE
     Indication: PRODUCT USED FOR UNKNOWN INDICATION
     Dosage: UNK
     Route: 048
  4. LORTAB [Suspect]
     Active Substance: ACETAMINOPHEN\HYDROCODONE BITARTRATE
     Indication: PAIN
     Dosage: 1 TABLET, Q4? 6H
     Route: 048

REACTIONS (16)
  - Endotracheal intubation [Unknown]
  - Drug dependence [Unknown]
  - Drug abuse [Unknown]
  - Chronic obstructive pulmonary disease [Unknown]
  - Insomnia [Unknown]
  - Intentional product misuse [Unknown]
  - Systemic lupus erythematosus [Unknown]
  - Disability [Unknown]
  - Gastric lavage [Unknown]
  - Hospitalisation [Unknown]
  - Loss of consciousness [Unknown]
  - Pulmonary fibrosis [Fatal]
  - Coma [Unknown]
  - Asphyxia [Unknown]
  - Unevaluable event [Unknown]
  - Overdose [Unknown]

NARRATIVE: CASE EVENT DATE: 201504
